FAERS Safety Report 22001648 (Version 2)
Quarter: 2023Q1

REPORT INFORMATION
  Report Type: Spontaneous
  Country: US (occurrence: US)
  Receive Date: 20230216
  Receipt Date: 20230322
  Transmission Date: 20230418
  Serious: Yes (Other)
  Sender: FDA-Public Use
  Company Number: US-BAYER-2023A015443

PATIENT
  Age: 64 Year

DRUGS (3)
  1. KERENDIA [Suspect]
     Active Substance: FINERENONE
     Indication: Renal failure
     Dosage: UNK
     Dates: start: 20220712, end: 20220906
  2. KERENDIA [Suspect]
     Active Substance: FINERENONE
     Indication: Urine albumin/creatinine ratio increased
  3. KERENDIA [Suspect]
     Active Substance: FINERENONE
     Indication: Diabetes mellitus

REACTIONS (3)
  - Anaphylactic reaction [Recovered/Resolved]
  - Dermatitis exfoliative generalised [None]
  - Dermatitis allergic [None]

NARRATIVE: CASE EVENT DATE: 20220101
